FAERS Safety Report 20999857 (Version 1)
Quarter: 2022Q2

REPORT INFORMATION
  Report Type: Spontaneous
  Country: US (occurrence: US)
  Receive Date: 20220623
  Receipt Date: 20220623
  Transmission Date: 20220721
  Serious: Yes (Hospitalization, Other)
  Sender: FDA-Public Use
  Company Number: US-TAKEDA-2022TUS040237

PATIENT
  Age: 66 Year
  Sex: Male
  Weight: 81.6 kg

DRUGS (8)
  1. PROTONIX [Suspect]
     Active Substance: PANTOPRAZOLE SODIUM
     Dosage: UNK
     Route: 065
     Dates: start: 20180306
  2. MARIBAVIR [Suspect]
     Active Substance: MARIBAVIR
     Dosage: UNK
     Route: 065
     Dates: start: 20220217
  3. ITACITINIB [Suspect]
     Active Substance: ITACITINIB
     Indication: Bronchiolitis obliterans syndrome
     Dosage: 300 MILLIGRAM, BID
     Route: 048
     Dates: start: 20210125, end: 20210303
  4. ITACITINIB [Suspect]
     Active Substance: ITACITINIB
     Dosage: 200 MILLIGRAM, BID
     Route: 048
     Dates: start: 20210323, end: 20210928
  5. ITACITINIB [Suspect]
     Active Substance: ITACITINIB
     Dosage: 200 MILLIGRAM, BID
     Route: 048
     Dates: start: 20210929, end: 20220206
  6. PREDNISONE [Concomitant]
     Active Substance: PREDNISONE
     Dosage: UNK
     Route: 065
     Dates: start: 20190125
  7. PREDNISONE [Concomitant]
     Active Substance: PREDNISONE
     Dosage: 60 MILLIGRAM
     Route: 065
     Dates: start: 20220409
  8. TACROLIMUS [Concomitant]
     Active Substance: TACROLIMUS
     Dosage: UNK
     Route: 065
     Dates: start: 20220119

REACTIONS (2)
  - Acute kidney injury [Recovered/Resolved]
  - Cardiac failure congestive [Recovered/Resolved]

NARRATIVE: CASE EVENT DATE: 20220329
